FAERS Safety Report 10210826 (Version 1)
Quarter: 2014Q2

REPORT INFORMATION
  Report Type: Spontaneous
  Country: IT (occurrence: IT)
  Receive Date: 20140602
  Receipt Date: 20140602
  Transmission Date: 20141212
  Serious: Yes (Other)
  Sender: FDA-Public Use
  Company Number: IT-MYLANLABS-2014S1012072

PATIENT
  Age: 18 Year
  Sex: Male

DRUGS (9)
  1. CODEINE [Suspect]
     Indication: PAIN IN EXTREMITY
     Dosage: FOR 1 DAY BEFORE PRESENTATION
     Route: 065
  2. CODEINE [Suspect]
     Indication: PAIN IN EXTREMITY
     Dosage: 1400H ON DAY OF ADMISSION
     Route: 065
  3. MORPHINE [Suspect]
     Indication: PROCEDURAL PAIN
     Dosage: 10MG AT 1450H ON THE DAY OF PRESENTATION
     Route: 048
  4. MORPHINE [Suspect]
     Indication: PROCEDURAL PAIN
     Dosage: 15MG AT 1555H ON THE DAY OF PRESENTATION
     Route: 048
  5. MORPHINE [Suspect]
     Indication: PROCEDURAL PAIN
     Dosage: 3MG
     Route: 042
  6. MORPHINE [Suspect]
     Indication: PROCEDURAL PAIN
     Dosage: 60 MG
     Route: 048
  7. MORPHINE [Suspect]
     Indication: PROCEDURAL PAIN
     Dosage: 50 MG ON 1ST POST-OPERATIVE DAY
     Route: 048
  8. TRAMADOL [Suspect]
     Indication: PROCEDURAL PAIN
     Dosage: 100 MG ON DAY OF OPERATION AND 1ST POSTOPERATIVE DAY
     Route: 065
  9. TRAMADOL [Suspect]
     Indication: PROCEDURAL PAIN
     Dosage: 100 MG AS REQUIRED
     Route: 065

REACTIONS (1)
  - Adrenal insufficiency [Recovered/Resolved]
